FAERS Safety Report 6981194-0 (Version None)
Quarter: 2010Q3

REPORT INFORMATION
  Report Type: 
  Country: None (occurrence: None)
  Receive Date: 20100914
  Receipt Date: 20100811
  Transmission Date: 20110219
  Serious: No
  Sender: FDA-Public Use
  Company Number: US-PFIZER INC-2010101611

PATIENT
  Sex: Female

DRUGS (2)
  1. LYRICA [Suspect]
     Indication: FIBROMYALGIA
     Dosage: 50 MG, 1X/DAY
  2. CYMBALTA [Suspect]
     Dosage: 30 MG, UNK

REACTIONS (4)
  - CONSTIPATION [None]
  - DRY MOUTH [None]
  - INSOMNIA [None]
  - WEIGHT DECREASED [None]
